FAERS Safety Report 6800705-9 (Version None)
Quarter: 2010Q2

REPORT INFORMATION
  Report Type: 
  Country: None (occurrence: None)
  Receive Date: 20100629
  Receipt Date: 20100617
  Transmission Date: 20101027
  Serious: Yes (Hospitalization)
  Sender: FDA-Public Use
  Company Number: DE-JNJFOC-20100210179

PATIENT
  Sex: Male
  Weight: 29 kg

DRUGS (7)
  1. REMICADE [Suspect]
     Indication: INFLAMMATORY BOWEL DISEASE
     Route: 042
  2. REMICADE [Suspect]
     Route: 042
  3. 5-ASA [Concomitant]
     Route: 048
  4. 5-ASA [Concomitant]
     Route: 054
  5. VITAMIN K TAB [Concomitant]
  6. POTASSIUM [Concomitant]
  7. CYCLOSPORINE [Concomitant]

REACTIONS (2)
  - INFUSION RELATED REACTION [None]
  - PYREXIA [None]
